FAERS Safety Report 16297339 (Version 1)
Quarter: 2019Q2

REPORT INFORMATION
  Report Type: Spontaneous
  Country: FR (occurrence: FR)
  Receive Date: 20190510
  Receipt Date: 20190510
  Transmission Date: 20190711
  Serious: Yes (Hospitalization)
  Sender: FDA-Public Use
  Company Number: FR-TEVA-2019-FR-1046895

PATIENT
  Age: 46 Year
  Sex: Female

DRUGS (11)
  1. LASILIX [Suspect]
     Active Substance: FUROSEMIDE
     Indication: OEDEMA
     Dosage: 80 MILLIGRAM DAILY;
     Route: 048
     Dates: start: 2018, end: 20190321
  2. IMUREL [Concomitant]
     Active Substance: AZATHIOPRINE SODIUM
  3. KERLONE [Concomitant]
     Active Substance: BETAXOLOL HYDROCHLORIDE
  4. CORTANCYL [Concomitant]
     Active Substance: PREDNISONE
  5. FLODIL [FELODIPINE] [Concomitant]
     Active Substance: FELODIPINE
  6. ARANESP [Concomitant]
     Active Substance: DARBEPOETIN ALFA
  7. BACTRIM [Suspect]
     Active Substance: SULFAMETHOXAZOLE\TRIMETHOPRIM
     Indication: PRODUCT USED FOR UNKNOWN INDICATION
     Route: 048
     Dates: start: 20190129, end: 20190321
  8. MEDROL [Concomitant]
     Active Substance: METHYLPREDNISOLONE
  9. LANSOPRAZOLE. [Suspect]
     Active Substance: LANSOPRAZOLE
     Indication: GASTROINTESTINAL DISORDER
     Route: 048
     Dates: start: 20190129, end: 20190321
  10. TRILEPTAL [Suspect]
     Active Substance: OXCARBAZEPINE
     Indication: EPILEPSY
     Route: 048
     Dates: start: 20190129, end: 20190321
  11. PROGRAF [Concomitant]
     Active Substance: TACROLIMUS\TACROLIMUS ANHYDROUS

REACTIONS (3)
  - Rash [Recovering/Resolving]
  - Drug reaction with eosinophilia and systemic symptoms [Recovering/Resolving]
  - Acute kidney injury [Recovering/Resolving]

NARRATIVE: CASE EVENT DATE: 20190303
